FAERS Safety Report 16148987 (Version 1)
Quarter: 2019Q2

REPORT INFORMATION
  Report Type: Spontaneous
  Country: JP (occurrence: JP)
  Receive Date: 20190402
  Receipt Date: 20190402
  Transmission Date: 20190711
  Serious: Yes (Hospitalization, Other)
  Sender: FDA-Public Use
  Company Number: JP-GILEAD-2019-0391904

PATIENT
  Age: 4 Decade
  Sex: Male

DRUGS (2)
  1. VEMLIDY [Suspect]
     Active Substance: TENOFOVIR ALAFENAMIDE FUMARATE
     Indication: PRODUCT USED FOR UNKNOWN INDICATION
     Dosage: UNKNOWN
     Route: 048
  2. ENTECAVIR MONOHYDRATE [Concomitant]
     Active Substance: ENTECAVIR

REACTIONS (4)
  - Glycosylated haemoglobin increased [Unknown]
  - Hyperglycaemia [Unknown]
  - Pancreatitis acute [Unknown]
  - Diabetic ketoacidosis [Unknown]

NARRATIVE: CASE EVENT DATE: 201902
